FAERS Safety Report 4322730-2 (Version None)
Quarter: 2004Q1

REPORT INFORMATION
  Report Type: 
  Country: None (occurrence: None)
  Receive Date: 20040324
  Receipt Date: 20040316
  Transmission Date: 20041129
  Serious: Yes (Other)
  Sender: FDA-Public Use
  Company Number: US-GLAXOSMITHKLINE-A0502980A

PATIENT
  Age: 40 Year
  Sex: Female

DRUGS (8)
  1. LAMICTAL [Suspect]
     Indication: EPILEPSY
     Dosage: 175MG TWICE PER DAY
     Route: 048
     Dates: start: 20020101
  2. AMOXICILLIN TRIHYDRATE + POTASSIUM CLAVULANATE [Suspect]
     Indication: SINUSITIS
     Dosage: 500MG TWICE PER DAY
     Route: 048
     Dates: start: 20040306, end: 20040315
  3. DOXYCYCLINE [Suspect]
     Indication: INFECTION
     Route: 048
  4. CALCIUM [Concomitant]
  5. VITAMIN E [Concomitant]
  6. VITAMIN B6 [Concomitant]
  7. FOLATE [Concomitant]
  8. MULTI-VITAMIN [Concomitant]

REACTIONS (2)
  - CONVULSION [None]
  - DRUG INTERACTION [None]
